FAERS Safety Report 12470964 (Version 1)
Quarter: 2016Q2

REPORT INFORMATION
  Report Type: Report from Study
  Country: TW (occurrence: TW)
  Receive Date: 20160616
  Receipt Date: 20160616
  Transmission Date: 20160815
  Serious: No
  Sender: FDA-Public Use
  Company Number: PHHY2016TW082744

PATIENT
  Age: 52 Year
  Sex: Male

DRUGS (1)
  1. TASIGNA [Suspect]
     Active Substance: NILOTINIB
     Indication: CHRONIC MYELOID LEUKAEMIA
     Dosage: 600 MG, UNK
     Route: 048
     Dates: start: 20150530

REACTIONS (2)
  - Cough [Not Recovered/Not Resolved]
  - Nasal obstruction [Recovered/Resolved]

NARRATIVE: CASE EVENT DATE: 20150610
